FAERS Safety Report 4602169-2 (Version None)
Quarter: 2005Q2

REPORT INFORMATION
  Report Type: 
  Country: None (occurrence: None)
  Receive Date: 20050215
  Receipt Date: 20040830
  Transmission Date: 20051028
  Serious: Yes (Life-Threatening, Hospitalization, Disabling, Other)
  Sender: FDA-Public Use
  Company Number: MC200400439

PATIENT
  Age: 83 Year
  Sex: Male
  Weight: 79.1 kg

DRUGS (5)
  1. ANGIOMAX [Suspect]
     Indication: STENT PLACEMENT
     Dosage: 12 ML, BOLUS, IV BOLUS
     Route: 040
     Dates: start: 20040617, end: 20040617
  2. ANGIOMAX [Suspect]
     Dosage: 28 ML/HR, IV DRIP
     Route: 041
     Dates: start: 20040617, end: 20040617
  3. PLAVIX [Concomitant]
  4. VERSED [Concomitant]
  5. FENTANYL [Concomitant]

REACTIONS (1)
  - HAEMORRHAGE INTRACRANIAL [None]
